FAERS Safety Report 16429062 (Version 2)
Quarter: 2019Q2

REPORT INFORMATION
  Report Type: Spontaneous
  Country: CA (occurrence: CA)
  Receive Date: 20190614
  Receipt Date: 20190617
  Transmission Date: 20190711
  Serious: No
  Sender: FDA-Public Use
  Company Number: CA-B.I. PHARMACEUTICALS,INC./RIDGEFIELD-2019-MI-000477

PATIENT
  Age: 90 Year
  Sex: Female
  Weight: 62 kg

DRUGS (2)
  1. PRAXBIND [Suspect]
     Active Substance: IDARUCIZUMAB
     Indication: PROCOAGULANT THERAPY
     Route: 042
     Dates: start: 20190531, end: 20190531
  2. PRAXBIND [Suspect]
     Active Substance: IDARUCIZUMAB
     Route: 042
     Dates: start: 20190601, end: 20190601

REACTIONS (1)
  - Coagulation factor increased [Recovered/Resolved]

NARRATIVE: CASE EVENT DATE: 20190531
